FAERS Safety Report 13540557 (Version 1)
Quarter: 2017Q2

REPORT INFORMATION
  Report Type: Report from Study
  Country: None (occurrence: US)
  Receive Date: 20170512
  Receipt Date: 20170512
  Transmission Date: 20170830
  Serious: Yes (Other)
  Sender: FDA-Public Use
  Company Number: US-ABBVIE-16K-163-1782005-00

PATIENT
  Sex: Male

DRUGS (1)
  1. HUMIRA [Suspect]
     Active Substance: ADALIMUMAB
     Indication: PSORIASIS
     Route: 058
     Dates: start: 201605

REACTIONS (7)
  - Hernia [Recovered/Resolved]
  - Nail psoriasis [Not Recovered/Not Resolved]
  - Surgery [Unknown]
  - Onychomadesis [Not Recovered/Not Resolved]
  - Headache [Not Recovered/Not Resolved]
  - Skin hypertrophy [Not Recovered/Not Resolved]
  - Drug effect decreased [Unknown]
